FAERS Safety Report 15893718 (Version 2)
Quarter: 2019Q1

REPORT INFORMATION
  Report Type: Spontaneous
  Country: DE (occurrence: DE)
  Receive Date: 20190131
  Receipt Date: 20190131
  Transmission Date: 20190417
  Serious: Yes (Hospitalization)
  Sender: FDA-Public Use
  Company Number: DE-ACCORD-103736

PATIENT
  Age: 67 Year
  Sex: Female
  Weight: 67 kg

DRUGS (10)
  1. HYDROMORPHONE/HYDROMORPHONE HYDROCHLORIDE [Concomitant]
     Dosage: 4 MG, 1-0-0-0, SUSTAINED-RELEASE TABLETS
     Route: 048
  2. SITAGLIPTIN/SITAGLIPTIN PHOSPHATE [Concomitant]
     Dosage: 100 MG, 1-0-0-0, TABLETS
     Route: 048
  3. PREGABALIN. [Concomitant]
     Active Substance: PREGABALIN
     Dosage: 75 MG, 0-0-1-0, TABLETS
     Route: 048
  4. CISPLATIN. [Suspect]
     Active Substance: CISPLATIN
     Indication: PRODUCT USED FOR UNKNOWN INDICATION
     Dosage: 75 MG / M2, SOLUTION FOR INJECTION / INFUSION
     Route: 042
  5. ACLIDINIUM BROMIDE/FORMOTEROL FUMARATE [Concomitant]
     Dosage: 340/23 UG, 1-0-1-0,  POWDER
     Route: 055
  6. ACETYLSALICYLIC ACID [Concomitant]
     Active Substance: ASPIRIN
     Dosage: 100 MG, 1-0-0-0, TABLETS
     Route: 048
  7. CANDESARTAN/HYDROCHLOROTHIAZIDE [Concomitant]
     Dosage: 32/12.5 MG, 1-0-0-0,  TABLETS
     Route: 048
  8. METAMIZOLE SODIUM [Concomitant]
     Active Substance: METAMIZOLE SODIUM
     Dosage: 500 MG, 2-2-2-2,  TABLETS
     Route: 048
  9. PEMETREXED. [Suspect]
     Active Substance: PEMETREXED
     Indication: PRODUCT USED FOR UNKNOWN INDICATION
     Dosage: 500 MG / M2, SOLUTION FOR INJECTION / INFUSION
     Route: 042
  10. LEVOTHYROXINE. [Concomitant]
     Active Substance: LEVOTHYROXINE
     Dosage: 150 UG, 1-0-0-0,  TABLETS
     Route: 048

REACTIONS (4)
  - Anaemia [Unknown]
  - Diarrhoea [Unknown]
  - Bicytopenia [Unknown]
  - General physical health deterioration [Unknown]
